FAERS Safety Report 11713105 (Version 1)
Quarter: 2015Q4

REPORT INFORMATION
  Report Type: Spontaneous
  Country: BR (occurrence: BR)
  Receive Date: 20151109
  Receipt Date: 20151109
  Transmission Date: 20160304
  Serious: Yes (Hospitalization, Other)
  Sender: FDA-Public Use
  Company Number: BR-009507513-1511BRA003422

PATIENT
  Age: 34 Year
  Sex: Female
  Weight: 82 kg

DRUGS (3)
  1. MERCILON  CONTI [Suspect]
     Active Substance: DESOGESTREL\ETHINYL ESTRADIOL
     Indication: CONTRACEPTION
     Dosage: 1 DF, QD
     Route: 048
     Dates: start: 2002, end: 2003
  2. MERCILON [Suspect]
     Active Substance: DESOGESTREL\ETHINYL ESTRADIOL
     Indication: CONTRACEPTION
     Dosage: 1 DF, QD
     Route: 048
  3. MERCILON  CONTI [Suspect]
     Active Substance: DESOGESTREL\ETHINYL ESTRADIOL
     Dosage: UNK
     Route: 048
     Dates: start: 20151104

REACTIONS (5)
  - Liposuction [Recovered/Resolved]
  - Abdominoplasty [Recovered/Resolved]
  - Emotional disorder [Not Recovered/Not Resolved]
  - Irritability [Not Recovered/Not Resolved]
  - Breast prosthesis implantation [Recovered/Resolved]

NARRATIVE: CASE EVENT DATE: 2011
